FAERS Safety Report 9347905 (Version 1)
Quarter: 2013Q2

REPORT INFORMATION
  Report Type: Spontaneous
  Country: US (occurrence: None)
  Receive Date: 20130612
  Receipt Date: 20130612
  Transmission Date: 20140414
  Serious: Yes (Hospitalization)
  Sender: FDA-Public Use
  Company Number: None

PATIENT
  Age: 56 Year
  Sex: Male
  Weight: 64 kg

DRUGS (1)
  1. OLANZAPINE [Suspect]
     Indication: BIPOLAR DISORDER
     Dosage: END OF APRIL FEW YEARS

REACTIONS (1)
  - Hepatitis [None]
